FAERS Safety Report 12997039 (Version 2)
Quarter: 2016Q4

REPORT INFORMATION
  Report Type: Spontaneous
  Country: TR (occurrence: TR)
  Receive Date: 20161205
  Receipt Date: 20161216
  Transmission Date: 20170207
  Serious: Yes (Other)
  Sender: FDA-Public Use
  Company Number: TR-ACCORD-046163

PATIENT
  Age: 50 Year
  Sex: Female

DRUGS (1)
  1. METHOTREXATE. [Suspect]
     Active Substance: METHOTREXATE
     Indication: PSORIASIS
     Dosage: (TOTAL 17.5 MG/WEEK)?RECEIVING FOR THE PAST YEAR

REACTIONS (8)
  - Toxicity to various agents [Unknown]
  - Drug ineffective [Unknown]
  - Haematuria [Unknown]
  - Drug interaction [Unknown]
  - Ulcer haemorrhage [Recovered/Resolved]
  - Thrombocytopenia [Recovered/Resolved]
  - Leukopenia [Recovered/Resolved]
  - Food interaction [Unknown]
